FAERS Safety Report 24384422 (Version 1)
Quarter: 2024Q4

REPORT INFORMATION
  Report Type: Report from Study
  Country: US (occurrence: US)
  Receive Date: 20241001
  Receipt Date: 20241001
  Transmission Date: 20250114
  Serious: Yes (Other)
  Sender: GILEAD
  Company Number: US-GILEAD-2024-0689389

PATIENT
  Sex: Female

DRUGS (13)
  1. AZTREONAM LYSINE [Suspect]
     Active Substance: AZTREONAM LYSINE
     Indication: Bacterial infection
     Dosage: INHALE 1 VIAL VIA NEBULIZER THREE TIMES DAILY EVERY MONTH
     Route: 055
     Dates: start: 20240509
  2. BUDESONIDE [Concomitant]
     Active Substance: BUDESONIDE
  3. CHLORHEXIDINE GLUCONATE [Concomitant]
     Active Substance: CHLORHEXIDINE GLUCONATE
  4. CLOBAZAM [Concomitant]
     Active Substance: CLOBAZAM
  5. ESCITALOPRAM [Concomitant]
     Active Substance: ESCITALOPRAM OXALATE
  6. FAMOTIDINE [Concomitant]
     Active Substance: FAMOTIDINE
  7. FELBAMATE [Concomitant]
     Active Substance: FELBAMATE
  8. FLUOCINONIDE [Concomitant]
     Active Substance: FLUOCINONIDE
  9. FLUTICASONE [Concomitant]
     Active Substance: FLUTICASONE
  10. FYCOMPA [Concomitant]
     Active Substance: PERAMPANEL
  11. LEVETIRACETAM [Concomitant]
     Active Substance: LEVETIRACETAM
  12. LEVOCARNITINE [Concomitant]
     Active Substance: LEVOCARNITINE
  13. POLYETHYLENE GLYCOL 3350 [Concomitant]
     Active Substance: POLYETHYLENE GLYCOL 3350

REACTIONS (2)
  - Lower limb fracture [Unknown]
  - Off label use [Not Recovered/Not Resolved]
